FAERS Safety Report 8519279-X (Version None)
Quarter: 2012Q3

REPORT INFORMATION
  Report Type: 
  Country: None (occurrence: None)
  Receive Date: 20120718
  Receipt Date: 20120704
  Transmission Date: 20120928
  Serious: Yes (Disabling)
  Sender: FDA-Public Use
  Company Number: JP-ELI_LILLY_AND_COMPANY-JP201207001809

PATIENT
  Age: 17 Year
  Sex: Male
  Weight: 58 kg

DRUGS (2)
  1. STRATTERA [Suspect]
     Indication: ATTENTION DEFICIT/HYPERACTIVITY DISORDER
     Dosage: 20 MG, QD
     Route: 048
     Dates: start: 20120601
  2. STRATTERA [Suspect]
     Dosage: 50 MG, QD
     Dates: end: 20120703

REACTIONS (3)
  - OESOPHAGEAL ULCER [None]
  - DIARRHOEA [None]
  - PYREXIA [None]
